FAERS Safety Report 25495268 (Version 3)
Quarter: 2025Q3

REPORT INFORMATION
  Report Type: Spontaneous
  Country: US (occurrence: US)
  Receive Date: 20250630
  Receipt Date: 20250707
  Transmission Date: 20251021
  Serious: No
  Sender: BAYER HEALTHCARE PHARMACEUTICALS INC.
  Company Number: US-BAYER-2025A085808

PATIENT
  Age: 75 Year
  Sex: Female

DRUGS (1)
  1. ESTRADIOL [Suspect]
     Active Substance: ESTRADIOL
     Route: 062
     Dates: start: 202504

REACTIONS (3)
  - Product ineffective [None]
  - Hot flush [None]
  - Hyperhidrosis [None]

NARRATIVE: CASE EVENT DATE: 20250101
